FAERS Safety Report 18688452 (Version 5)
Quarter: 2021Q1

REPORT INFORMATION
  Report Type: Report from Study
  Country: US (occurrence: US)
  Receive Date: 20201231
  Receipt Date: 20210305
  Transmission Date: 20210419
  Serious: Yes (Hospitalization, Other)
  Sender: FDA-Public Use
  Company Number: NVSC2020US342270

PATIENT
  Sex: Male

DRUGS (1)
  1. ENTRESTO [Suspect]
     Active Substance: SACUBITRIL\VALSARTAN
     Indication: CARDIAC FAILURE
     Dosage: UNK
     Route: 065

REACTIONS (6)
  - Fluid retention [Unknown]
  - Weight decreased [Unknown]
  - Product dose omission issue [Recovering/Resolving]
  - Renal failure [Unknown]
  - Cardiac failure [Recovering/Resolving]
  - COVID-19 [Unknown]
